FAERS Safety Report 19922864 (Version 5)
Quarter: 2021Q4

REPORT INFORMATION
  Report Type: Spontaneous
  Country: JP (occurrence: JP)
  Receive Date: 20211006
  Receipt Date: 20211130
  Transmission Date: 20220303
  Serious: Yes (Hospitalization)
  Sender: FDA-Public Use
  Company Number: JP-BRISTOL-MYERS SQUIBB COMPANY-BMS-2021-075455

PATIENT
  Age: 79 Year
  Sex: Male
  Weight: 60 kg

DRUGS (5)
  1. YERVOY [Suspect]
     Active Substance: IPILIMUMAB
     Indication: Non-small cell lung cancer recurrent
     Dosage: 56.8 MILLIGRAM, Q6WK
     Route: 041
     Dates: start: 20210708, end: 20210726
  2. YERVOY [Suspect]
     Active Substance: IPILIMUMAB
     Dosage: 56.8 UNK
     Route: 041
     Dates: start: 20210708, end: 20210708
  3. OPDIVO [Suspect]
     Active Substance: NIVOLUMAB
     Indication: Non-small cell lung cancer recurrent
     Dosage: 360 MILLIGRAM, Q3WK
     Route: 041
     Dates: start: 20210708, end: 20210726
  4. OPDIVO [Suspect]
     Active Substance: NIVOLUMAB
     Dosage: 360 MILLIGRAM, Q3WK
     Route: 041
     Dates: start: 20210708, end: 20210708
  5. UNSPECIFIED INGREDIENT [Concomitant]
     Active Substance: UNSPECIFIED INGREDIENT
     Indication: Tumour associated fever
     Dosage: UNK
     Route: 065

REACTIONS (4)
  - Blood creatinine increased [Recovering/Resolving]
  - Nephropathy toxic [Recovering/Resolving]
  - Hypoalbuminaemia [Recovering/Resolving]
  - Fall [Unknown]

NARRATIVE: CASE EVENT DATE: 20210712
